FAERS Safety Report 11087987 (Version 1)
Quarter: 2015Q2

REPORT INFORMATION
  Report Type: Spontaneous
  Country: US (occurrence: None)
  Receive Date: 20150430
  Receipt Date: 20150430
  Transmission Date: 20150821
  Serious: Yes (Other)
  Sender: FDA-Public Use
  Company Number: ADE15-035

PATIENT
  Age: 55 Year
  Sex: Male
  Weight: 86 kg

DRUGS (1)
  1. HEPARIN SODIUM. [Suspect]
     Active Substance: HEPARIN SODIUM
     Indication: ANGIOGRAM
     Dosage: 8000 U TOTAL DOSE, IV
     Route: 042
     Dates: start: 20150319, end: 20150319

REACTIONS (1)
  - Coagulation time shortened [None]

NARRATIVE: CASE EVENT DATE: 20150319
